FAERS Safety Report 21197598 (Version 1)
Quarter: 2022Q3

REPORT INFORMATION
  Report Type: Spontaneous
  Country: US (occurrence: US)
  Receive Date: 20220810
  Receipt Date: 20220810
  Transmission Date: 20221027
  Serious: No
  Sender: FDA-Public Use
  Company Number: US-SA-SAC20220802001676

PATIENT
  Age: 61 Year
  Sex: Female

DRUGS (1)
  1. DUPIXENT [Suspect]
     Active Substance: DUPILUMAB
     Dosage: 300MG, OTHER
     Route: 058
     Dates: start: 202012

REACTIONS (5)
  - Flushing [Unknown]
  - Anxiety [Unknown]
  - Paraesthesia [Unknown]
  - Feeling hot [Unknown]
  - Panic reaction [Unknown]

NARRATIVE: CASE EVENT DATE: 20220727
